FAERS Safety Report 24678659 (Version 1)
Quarter: 2024Q4

REPORT INFORMATION
  Report Type: Report from Study
  Country: ES (occurrence: ES)
  Receive Date: 20241129
  Receipt Date: 20241129
  Transmission Date: 20250114
  Serious: Yes (Hospitalization, Other)
  Sender: AUROBINDO
  Company Number: ES-ROCHE-1423601

PATIENT
  Age: 79 Year
  Sex: Male

DRUGS (2)
  1. BENDAMUSTINE HYDROCHLORIDE [Suspect]
     Active Substance: BENDAMUSTINE HYDROCHLORIDE
     Indication: Chronic lymphocytic leukaemia
     Dosage: CYCLICAL
     Route: 042
     Dates: start: 2013
  2. RITUXIMAB [Suspect]
     Active Substance: RITUXIMAB
     Indication: Chronic lymphocytic leukaemia
     Dosage: 375 MILLIGRAM/SQ. METER, CYCLICAL
     Route: 065
     Dates: start: 2013

REACTIONS (6)
  - CD4 lymphocytes decreased [Unknown]
  - Cytomegalovirus infection reactivation [Unknown]
  - Septic shock [Recovered/Resolved]
  - Achromobacter infection [Recovered/Resolved]
  - Product use issue [Unknown]
  - Epstein-Barr virus infection reactivation [Unknown]

NARRATIVE: CASE EVENT DATE: 20130101
